FAERS Safety Report 5420949-0 (Version None)
Quarter: 2007Q3

REPORT INFORMATION
  Report Type: 
  Country: None (occurrence: None)
  Receive Date: 20070817
  Receipt Date: 20070817
  Transmission Date: 20080115
  Serious: Yes (Hospitalization)
  Sender: FDA-Public Use
  Company Number: None

PATIENT
  Age: 58 Year
  Sex: Male

DRUGS (1)
  1. DEXAMETHASONE 0.5MG TAB [Suspect]
     Indication: INFLAMMATION
     Dosage: 4MG QID PO
     Route: 048
     Dates: start: 20070807, end: 20070814

REACTIONS (1)
  - MYOSITIS [None]
